FAERS Safety Report 7419669 (Version 3)
Quarter: 2013Q1

REPORT INFORMATION
  Report Type: Spontaneous
  Country: FR (occurrence: None)
  Receive Date: 20100426
  Receipt Date: 20121102
  Transmission Date: 20140127
  Serious: Yes (Life-Threatening, Hospitalization, Other)
  Sender: FDA-Public Use
  Company Number: 2010022455

PATIENT
  Age: 4 Year
  Sex: Male

DRUGS (12)
  1. HAEMATE P [Suspect]
     Indication: IMMUNOSUPPRESSANT DRUG THERAPY
     Dosage: 3000 IU, 20 ML / MIN, 3000 IU, 3000, INTRAVENOUS (NOT OTHERWISE SPECIFIED)
     Route: 042
  2. HAEMATE P [Suspect]
  3. HAEMATE P [Suspect]
  4. HAEMATE P [Suspect]
  5. HAEMATE P [Suspect]
  6. HAEMATE P [Suspect]
  7. HAEMATE P [Suspect]
  8. HAEMATE P [Suspect]
  9. FEIBA [Suspect]
     Dates: start: 20080621
  10. NOVOSEVEN RT [Suspect]
     Dates: start: 20090411
  11. FEIBA [Concomitant]
  12. NOVOSEVEN /01034101/ (FACTOR VII (PROCONVERTIN)) [Concomitant]

REACTIONS (5)
  - Endocarditis [None]
  - Haemarthrosis [None]
  - Haematoma [None]
  - Device related sepsis [None]
  - Drug ineffective [None]
